FAERS Safety Report 6531346-9 (Version None)
Quarter: 2010Q1

REPORT INFORMATION
  Report Type: 
  Country: None (occurrence: None)
  Receive Date: 20100108
  Receipt Date: 20091116
  Transmission Date: 20100710
  Serious: No
  Sender: FDA-Public Use
  Company Number: A0808962A

PATIENT
  Age: 61 Year
  Sex: Female
  Weight: 57.7 kg

DRUGS (2)
  1. TYKERB [Suspect]
     Indication: DRUG USE FOR UNKNOWN INDICATION
     Dosage: 1000MG PER DAY
     Route: 048
     Dates: start: 20090917
  2. BLOOD PRESSURE MEDICATION [Concomitant]

REACTIONS (2)
  - HYPOTENSION [None]
  - NAUSEA [None]
